FAERS Safety Report 13206653 (Version 1)
Quarter: 2017Q1

REPORT INFORMATION
  Report Type: Spontaneous
  Country: US (occurrence: US)
  Receive Date: 20170209
  Receipt Date: 20170209
  Transmission Date: 20170428
  Serious: No
  Sender: FDA-Public Use
  Company Number: US-SA-2016SA218785

PATIENT
  Age: 65 Year
  Sex: Female
  Weight: 56.24 kg

DRUGS (2)
  1. ALIROCUMAB PREFILLED PEN [Concomitant]
     Active Substance: ALIROCUMAB
     Indication: HYPERLIPIDAEMIA
     Dates: start: 20161027, end: 20161117
  2. PRALUENT [Suspect]
     Active Substance: ALIROCUMAB
     Indication: HYPERLIPIDAEMIA
     Route: 058
     Dates: start: 20161027, end: 20161117

REACTIONS (6)
  - Weight decreased [Unknown]
  - Unevaluable event [Unknown]
  - Chills [Unknown]
  - Abdominal pain [Unknown]
  - Oral mucosal blistering [Unknown]
  - Stomatitis [Unknown]
